FAERS Safety Report 19610436 (Version 1)
Quarter: 2021Q3

REPORT INFORMATION
  Report Type: Report from Study
  Country: BR (occurrence: BR)
  Receive Date: 20210726
  Receipt Date: 20210726
  Transmission Date: 20211014
  Serious: Yes (Death)
  Sender: FDA-Public Use
  Company Number: BR-JNJFOC-20210749288

PATIENT
  Sex: Female

DRUGS (1)
  1. SIMPONI [Suspect]
     Active Substance: GOLIMUMAB
     Indication: PSORIATIC ARTHROPATHY
     Route: 058
     Dates: end: 202009

REACTIONS (4)
  - Anaemia [Fatal]
  - COVID-19 [Fatal]
  - Cardiac disorder [Fatal]
  - Leukaemia [Fatal]

NARRATIVE: CASE EVENT DATE: 2020
